FAERS Safety Report 18473841 (Version 1)
Quarter: 2020Q4

REPORT INFORMATION
  Report Type: Report from Study
  Country: AU (occurrence: AU)
  Receive Date: 20201106
  Receipt Date: 20201106
  Transmission Date: 20210114
  Serious: Yes (Death, Other)
  Sender: FDA-Public Use
  Company Number: AU-JNJFOC-20201047916

PATIENT
  Sex: Male
  Weight: 80 kg

DRUGS (1)
  1. DARZALEX [Suspect]
     Active Substance: DARATUMUMAB
     Indication: PLASMA CELL MYELOMA
     Route: 042

REACTIONS (6)
  - Atrial fibrillation [Fatal]
  - Lactic acidosis [Fatal]
  - Hypertension [Fatal]
  - Anaphylactic reaction [Fatal]
  - Renal failure [Fatal]
  - Infusion related reaction [Fatal]
